FAERS Safety Report 6408654-5 (Version None)
Quarter: 2009Q4

REPORT INFORMATION
  Report Type: 
  Country: None (occurrence: None)
  Receive Date: 20091019
  Receipt Date: 20090928
  Transmission Date: 20100525
  Serious: Yes (Hospitalization)
  Sender: FDA-Public Use
  Company Number: 1-20232107

PATIENT
  Age: 36 Year
  Sex: Female

DRUGS (1)
  1. METHIMAZOLE [Suspect]
     Indication: BASEDOW'S DISEASE
     Dosage: ORAL
     Route: 048

REACTIONS (13)
  - CHORIORETINOPATHY [None]
  - DRUG RASH WITH EOSINOPHILIA AND SYSTEMIC SYMPTOMS [None]
  - HEADACHE [None]
  - IMMUNE SYSTEM DISORDER [None]
  - MUSCULAR WEAKNESS [None]
  - MUSCULOSKELETAL STIFFNESS [None]
  - MYOPATHY [None]
  - PAPILLOEDEMA [None]
  - RETINAL DETACHMENT [None]
  - RETINAL OEDEMA [None]
  - VISION BLURRED [None]
  - VITREOUS OPACITIES [None]
  - VOGT-KOYANAGI-HARADA SYNDROME [None]
